FAERS Safety Report 5385360-X (Version None)
Quarter: 2007Q3

REPORT INFORMATION
  Report Type: 
  Country: None (occurrence: None)
  Receive Date: 20070709
  Receipt Date: 20070629
  Transmission Date: 20080115
  Serious: No
  Sender: FDA-Public Use
  Company Number: 163-21880-07051510

PATIENT
  Age: 62 Year
  Sex: Female

DRUGS (9)
  1. REVLIMID [Suspect]
     Indication: MULTIPLE MYELOMA
     Dosage: 15 MG, DAILY FOR 21 DAYS, ORAL
     Route: 048
     Dates: start: 20070517, end: 20070607
  2. REVLIMID [Suspect]
     Indication: MULTIPLE MYELOMA
     Dosage: 15 MG, DAILY FOR 21 DAYS, ORAL
     Route: 048
     Dates: start: 20070621
  3. LASIX [Concomitant]
  4. K-DUR 10 [Concomitant]
  5. ZOLOFT [Concomitant]
  6. ARIMIDEX [Concomitant]
  7. COUMADIN [Concomitant]
  8. ASPIRIN [Concomitant]
  9. AREDIA [Concomitant]

REACTIONS (2)
  - AGEUSIA [None]
  - DENTAL CARIES [None]
